FAERS Safety Report 8808129 (Version 1)
Quarter: 2012Q4

REPORT INFORMATION
  Report Type: 
  Country: US (occurrence: US)
  Receive Date: 20120925
  Receipt Date: 20120925
  Transmission Date: 20130627
  Serious: No
  Sender: FDA-Public Use
  Company Number: US-PFIZER INC-2012235089

PATIENT
  Age: 46 Year
  Sex: Male
  Weight: 79.82 kg

DRUGS (3)
  1. LIPITOR [Suspect]
     Indication: BLOOD CHOLESTEROL INCREASED
     Dosage: 10 mg, daily
     Route: 048
     Dates: start: 2002
  2. VITAMINS [Concomitant]
     Dosage: UNK
  3. ZANTAC [Concomitant]
     Indication: GASTROOESOPHAGEAL REFLUX DISEASE
     Dosage: 150 mg, as needed

REACTIONS (1)
  - Lymphocyte count increased [Not Recovered/Not Resolved]
